FAERS Safety Report 12499773 (Version 52)
Quarter: 2021Q4

REPORT INFORMATION
  Report Type: Report from Study
  Country: CA (occurrence: CA)
  Receive Date: 20160627
  Receipt Date: 20211006
  Transmission Date: 20220304
  Serious: Yes (Hospitalization, Other)
  Sender: FDA-Public Use
  Company Number: PHHY2016CA086023

PATIENT
  Age: 72 Year
  Sex: Female

DRUGS (21)
  1. SANDOSTATIN LAR DEPOT [Suspect]
     Active Substance: OCTREOTIDE ACETATE
     Indication: Carcinoid tumour
     Dosage: 20 MG, QMO
     Route: 030
     Dates: start: 20130429, end: 2016
  2. SANDOSTATIN LAR DEPOT [Suspect]
     Active Substance: OCTREOTIDE ACETATE
     Dosage: 20 MG, QMO (Q 28 DAYS)
     Route: 030
     Dates: start: 2016, end: 20160614
  3. SANDOSTATIN LAR DEPOT [Suspect]
     Active Substance: OCTREOTIDE ACETATE
     Dosage: 30 MG, QMO ONCE A MONTH
     Route: 030
     Dates: start: 20160707, end: 20160707
  4. SANDOSTATIN LAR DEPOT [Suspect]
     Active Substance: OCTREOTIDE ACETATE
     Dosage: 30 MG, QMO (EVERY 4 WEEKS)
     Route: 030
     Dates: start: 20160712, end: 20170124
  5. SANDOSTATIN LAR DEPOT [Suspect]
     Active Substance: OCTREOTIDE ACETATE
     Dosage: 40 MG, QMO (ONCE A MONTH)
     Route: 030
     Dates: start: 20170221
  6. SANDOSTATIN LAR DEPOT [Suspect]
     Active Substance: OCTREOTIDE ACETATE
     Dosage: 30 MG, QMO (EVERY 4 WEEKS)
     Route: 030
     Dates: start: 20170504
  7. SANDOSTATIN LAR DEPOT [Suspect]
     Active Substance: OCTREOTIDE ACETATE
     Dosage: 20 MG, QMO (EVERY 4 WEEKS)
     Route: 030
  8. SANDOSTATIN LAR DEPOT [Suspect]
     Active Substance: OCTREOTIDE ACETATE
     Dosage: 20 MG (EVERY 4 WEEKS)
     Route: 030
     Dates: start: 20130429
  9. SANDOSTATIN [Suspect]
     Active Substance: OCTREOTIDE ACETATE
     Indication: Carcinoid tumour
     Dosage: UNK
     Route: 065
     Dates: start: 20130425, end: 20130428
  10. SANDOSTATIN [Suspect]
     Active Substance: OCTREOTIDE ACETATE
     Dosage: 150 MCG, BID
     Route: 058
     Dates: start: 20150928
  11. SANDOSTATIN [Suspect]
     Active Substance: OCTREOTIDE ACETATE
     Dosage: 100 MCG, Q 8 H PRN, MAX 2/DAY
     Route: 058
  12. DEXAMETHASONE [Suspect]
     Active Substance: DEXAMETHASONE
     Indication: Product used for unknown indication
     Dosage: UNK
     Route: 065
  13. FEMARA [Suspect]
     Active Substance: LETROZOLE
     Indication: Product used for unknown indication
     Dosage: 2.5 MG, QD (ONCE A DAY)
     Route: 048
     Dates: start: 20160602, end: 2016
  14. TAMOXIFEN [Suspect]
     Active Substance: TAMOXIFEN
     Indication: Breast neoplasm
     Dosage: 20 MG, QD
     Route: 048
  15. NORVASC [Concomitant]
     Active Substance: AMLODIPINE BESYLATE
     Indication: Product used for unknown indication
     Dosage: UNK
     Route: 065
     Dates: start: 2005
  16. AVAPRO [Concomitant]
     Active Substance: IRBESARTAN
     Indication: Product used for unknown indication
     Dosage: UNK
     Route: 065
     Dates: start: 2005
  17. LEVOMEPROMAZINE MALEATE [Concomitant]
     Active Substance: LEVOMEPROMAZINE MALEATE
     Indication: Product used for unknown indication
     Dosage: 4 MG, QD
     Route: 048
  18. ACETAMINOPHEN [Concomitant]
     Active Substance: ACETAMINOPHEN
     Indication: Product used for unknown indication
     Dosage: 1 DF
     Route: 048
  19. NAPROXEN [Concomitant]
     Active Substance: NAPROXEN
     Indication: Product used for unknown indication
     Dosage: 1 DF
     Route: 048
  20. HUMALOG [Concomitant]
     Active Substance: INSULIN LISPRO
     Indication: Product used for unknown indication
     Dosage: UNK
     Route: 058
  21. LANTUS [Concomitant]
     Active Substance: INSULIN GLARGINE
     Indication: Product used for unknown indication
     Dosage: 1 DF(STRENGTH: 10)
     Route: 058

REACTIONS (55)
  - Superinfection [Unknown]
  - Pyrexia [Unknown]
  - Vomiting [Unknown]
  - Pyelonephritis [Unknown]
  - Breast cancer [Recovering/Resolving]
  - Second primary malignancy [Recovering/Resolving]
  - Haematochezia [Unknown]
  - Transfusion-related circulatory overload [Unknown]
  - Pleural effusion [Unknown]
  - Cellulitis [Recovering/Resolving]
  - Skin plaque [Recovering/Resolving]
  - Erythema [Recovering/Resolving]
  - Skin warm [Recovered/Resolved]
  - Dry skin [Recovered/Resolved]
  - Chills [Recovered/Resolved]
  - Blood pressure systolic increased [Unknown]
  - Nephrolithiasis [Unknown]
  - Bradycardia [Unknown]
  - Metastases to pelvis [Unknown]
  - Gastrooesophageal reflux disease [Unknown]
  - Myalgia [Unknown]
  - Fatigue [Not Recovered/Not Resolved]
  - Body temperature decreased [Unknown]
  - Hypotension [Unknown]
  - Swelling [Unknown]
  - Underdose [Unknown]
  - Discomfort [Unknown]
  - Arthralgia [Recovering/Resolving]
  - Blood pressure diastolic decreased [Unknown]
  - Back pain [Unknown]
  - Fall [Unknown]
  - Weight decreased [Unknown]
  - Gastrointestinal disorder [Recovering/Resolving]
  - Pain in extremity [Recovering/Resolving]
  - Oedema peripheral [Unknown]
  - Blood glucose increased [Unknown]
  - Nausea [Unknown]
  - Diarrhoea [Recovered/Resolved]
  - Constipation [Unknown]
  - Asthenia [Recovering/Resolving]
  - Abdominal pain [Recovered/Resolved]
  - Dizziness [Unknown]
  - Flatulence [Not Recovered/Not Resolved]
  - Urinary tract infection [Recovered/Resolved]
  - Pyrexia [Recovered/Resolved]
  - Decreased appetite [Unknown]
  - Scar [Recovered/Resolved]
  - Gastrointestinal inflammation [Unknown]
  - Diarrhoea [Unknown]
  - Pain [Unknown]
  - Insomnia [Unknown]
  - Hypoglycaemia [Unknown]
  - Needle issue [Unknown]
  - Injection site pain [Recovered/Resolved]
  - Inappropriate schedule of product administration [Unknown]

NARRATIVE: CASE EVENT DATE: 20160101
